FAERS Safety Report 13313043 (Version 1)
Quarter: 2017Q1

REPORT INFORMATION
  Report Type: Spontaneous
  Country: US (occurrence: US)
  Receive Date: 20170308
  Receipt Date: 20170308
  Transmission Date: 20170428
  Serious: Yes (Hospitalization)
  Sender: FDA-Public Use
  Company Number: US-ELI_LILLY_AND_COMPANY-US201607010149

PATIENT
  Sex: Female

DRUGS (2)
  1. CYMBALTA [Suspect]
     Active Substance: DULOXETINE HYDROCHLORIDE
     Dosage: 30 MG, QD
     Route: 065
  2. CYMBALTA [Suspect]
     Active Substance: DULOXETINE HYDROCHLORIDE
     Indication: PAIN
     Dosage: 60 MG, QD
     Route: 065

REACTIONS (18)
  - Restless legs syndrome [Unknown]
  - Anxiety [Unknown]
  - Wrong technique in product usage process [Unknown]
  - Vomiting [Unknown]
  - Insomnia [Unknown]
  - Feeling cold [Unknown]
  - Agitation [Unknown]
  - Fatigue [Unknown]
  - Diarrhoea [Unknown]
  - Hyperhidrosis [Unknown]
  - Nausea [Unknown]
  - Dizziness [Unknown]
  - Lethargy [Unknown]
  - Chest discomfort [Unknown]
  - Drug withdrawal syndrome [Unknown]
  - Intentional product misuse [Unknown]
  - Skin burning sensation [Unknown]
  - Feeling abnormal [Unknown]
